FAERS Safety Report 11093842 (Version 1)
Quarter: 2015Q2

REPORT INFORMATION
  Report Type: Spontaneous
  Country: US (occurrence: None)
  Receive Date: 20150428
  Receipt Date: 20150428
  Transmission Date: 20150821
  Serious: Yes (Other)
  Sender: FDA-Public Use
  Company Number: PHEH2015US002942

PATIENT
  Age: 54 Year
  Sex: Female

DRUGS (1)
  1. GILENYA [Suspect]
     Active Substance: FINGOLIMOD HYDROCHLORIDE
     Indication: MULTIPLE SCLEROSIS
     Route: 048
     Dates: start: 20150130, end: 20150131

REACTIONS (5)
  - Headache [None]
  - Blood pressure increased [None]
  - Hyperhidrosis [None]
  - Heart rate decreased [None]
  - Neck pain [None]

NARRATIVE: CASE EVENT DATE: 20150130
